FAERS Safety Report 8003378-5 (Version None)
Quarter: 2011Q4

REPORT INFORMATION
  Report Type: 
  Country: None (occurrence: None)
  Receive Date: 20111222
  Receipt Date: 20111212
  Transmission Date: 20120403
  Serious: Yes (Hospitalization)
  Sender: FDA-Public Use
  Company Number: NL-MEDIMMUNE-MEDI-0014219

PATIENT
  Sex: Male
  Weight: 4.33 kg

DRUGS (2)
  1. SYNAGIS [Suspect]
     Indication: PREMATURE BABY
     Route: 030
     Dates: start: 20111008, end: 20111008
  2. SYNAGIS [Suspect]
     Indication: HYDROCEPHALUS
     Route: 030
     Dates: start: 20111212

REACTIONS (2)
  - CYST [None]
  - SHUNT OCCLUSION [None]
